FAERS Safety Report 9540545 (Version 2)
Quarter: 2013Q3

REPORT INFORMATION
  Report Type: Spontaneous
  Country: US (occurrence: US)
  Receive Date: 20130920
  Receipt Date: 20130925
  Transmission Date: 20140515
  Serious: Yes (Other)
  Sender: FDA-Public Use
  Company Number: US-TAKEDA-2013TUS000690

PATIENT
  Sex: 0

DRUGS (2)
  1. PREVACID [Suspect]
     Dosage: 15 MG, QD
     Route: 048
  2. PREVACID [Suspect]
     Dosage: 30 MG, QD
     Route: 065
     Dates: start: 201305

REACTIONS (3)
  - Neoplasm malignant [Not Recovered/Not Resolved]
  - Fatigue [Not Recovered/Not Resolved]
  - Somnolence [Not Recovered/Not Resolved]
